FAERS Safety Report 21400696 (Version 3)
Quarter: 2023Q1

REPORT INFORMATION
  Report Type: Other
  Country: US (occurrence: US)
  Receive Date: 20221003
  Receipt Date: 20230112
  Transmission Date: 20230417
  Serious: Yes (Hospitalization)
  Sender: FDA-Public Use
  Company Number: US-INTERCEPT-PM2022001714

PATIENT
  Sex: Female
  Weight: 68.027 kg

DRUGS (3)
  1. OCALIVA [Suspect]
     Active Substance: OBETICHOLIC ACID
     Indication: Primary biliary cholangitis
     Dosage: 5 MILLIGRAM, QD
     Route: 048
     Dates: start: 202012, end: 202207
  2. OCALIVA [Suspect]
     Active Substance: OBETICHOLIC ACID
     Dosage: 5 MILLIGRAM, QD
     Route: 048
     Dates: start: 20220729, end: 2022
  3. OCALIVA [Suspect]
     Active Substance: OBETICHOLIC ACID
     Dosage: 5 MILLIGRAM, QD
     Route: 048
     Dates: start: 2022

REACTIONS (5)
  - Loss of consciousness [Unknown]
  - Pruritus [Recovered/Resolved]
  - Product dose omission in error [Recovered/Resolved]
  - Therapy interrupted [Recovered/Resolved]
  - Insurance issue [Recovered/Resolved]

NARRATIVE: CASE EVENT DATE: 20220101
